FAERS Safety Report 19666157 (Version 1)
Quarter: 2021Q3

REPORT INFORMATION
  Report Type: Other
  Country: CA (occurrence: CA)
  Receive Date: 20210806
  Receipt Date: 20210806
  Transmission Date: 20211014
  Serious: Yes (Death, Other)
  Sender: FDA-Public Use
  Company Number: CA-APOTEX-2021AP026327

PATIENT
  Sex: Male

DRUGS (1)
  1. APO?DASATINIB [Suspect]
     Active Substance: DASATINIB
     Indication: LEUKAEMIA
     Dosage: 50 MILLIGRAM
     Route: 048
     Dates: start: 20200526

REACTIONS (1)
  - Death [Fatal]
